FAERS Safety Report 12515283 (Version 2)
Quarter: 2020Q3

REPORT INFORMATION
  Report Type: Spontaneous
  Country: TR (occurrence: TR)
  Receive Date: 20160630
  Receipt Date: 20200724
  Transmission Date: 20201102
  Serious: Yes (Hospitalization, Other)
  Sender: FDA-Public Use
  Company Number: TR-MACLEODS PHARMACEUTICALS US LTD-MAC2016002858

PATIENT

DRUGS (2)
  1. OLANZAPINE 10 MG [Suspect]
     Active Substance: OLANZAPINE
     Indication: PSYCHIATRIC SYMPTOM
     Dosage: 10 MILLIGRAM, QD
     Route: 065
  2. OLANZAPINE 10 MG [Suspect]
     Active Substance: OLANZAPINE
     Dosage: 10 MILLIGRAM, QD
     Route: 065

REACTIONS (7)
  - Insomnia [Recovering/Resolving]
  - Tardive dyskinesia [Recovered/Resolved]
  - Persecutory delusion [Recovering/Resolving]
  - Fear [Recovering/Resolving]
  - Psychomotor hyperactivity [Recovering/Resolving]
  - Rebound psychosis [Recovering/Resolving]
  - Anxiety [Recovering/Resolving]
